FAERS Safety Report 17388901 (Version 1)
Quarter: 2020Q1

REPORT INFORMATION
  Report Type: Spontaneous
  Country: US (occurrence: US)
  Receive Date: 20200123
  Receipt Date: 20200123
  Transmission Date: 20200409
  Serious: No
  Sender: FDA-Public Use
  Company Number: None

PATIENT
  Age: 39 Year
  Sex: Female

DRUGS (8)
  1. PREDNIDOLONE SUS [Concomitant]
  2. OMERAZOLE [Concomitant]
     Active Substance: OMEPRAZOLE
  3. LEUCOVOR CA [Concomitant]
  4. DARAPRIM [Suspect]
     Active Substance: PYRIMETHAMINE
     Indication: EYE INFECTION TOXOPLASMAL
     Route: 048
     Dates: start: 20191106
  5. ONDANSETRON [Concomitant]
     Active Substance: ONDANSETRON
  6. DICLOFEN POT [Concomitant]
  7. BRIMONIDINE SOL [Concomitant]
  8. AZITHROYCIN [Concomitant]

REACTIONS (2)
  - Decreased appetite [None]
  - Stomatitis [None]

NARRATIVE: CASE EVENT DATE: 20191230
